FAERS Safety Report 9337909 (Version 2)
Quarter: 2013Q4

REPORT INFORMATION
  Report Type: Report from Study
  Country: AE (occurrence: AE)
  Receive Date: 20130609
  Receipt Date: 20131107
  Transmission Date: 20140711
  Serious: Yes (Other)
  Sender: FDA-Public Use
  Company Number: AE-009507513-1306ARE002427

PATIENT
  Age: 62 Year
  Sex: Female

DRUGS (6)
  1. VICTRELIS 200 MG [Suspect]
     Indication: HEPATITIS C
     Dosage: 400 MG, BID
     Route: 048
     Dates: start: 20121223
  2. VICTRELIS 200 MG [Suspect]
     Dosage: UNK
     Route: 048
     Dates: start: 2013
  3. PEGINTERFERON ALFA-2B [Suspect]
     Indication: HEPATITIS C
     Dosage: 100 MCG, 1 IN 7 D
     Route: 058
     Dates: start: 20121125
  4. PEGINTERFERON ALFA-2B [Suspect]
     Dosage: UNK
     Route: 058
     Dates: start: 2013
  5. COPEGUS [Suspect]
     Indication: HEPATITIS C
     Dosage: 800 MG, QD
     Route: 048
     Dates: start: 20121125
  6. COPEGUS [Suspect]
     Dosage: UNK
     Route: 048
     Dates: start: 2013

REACTIONS (1)
  - Anaemia [Recovered/Resolved]
